FAERS Safety Report 24920822 (Version 1)
Quarter: 2025Q1

REPORT INFORMATION
  Report Type: Spontaneous
  Country: GB (occurrence: GB)
  Receive Date: 20250204
  Receipt Date: 20250204
  Transmission Date: 20250408
  Serious: Yes (Other)
  Sender: ADVANZ PHARMA
  Company Number: None

PATIENT

DRUGS (12)
  1. PREDNISOLONE SODIUM PHOSPHATE [Suspect]
     Active Substance: PREDNISOLONE SODIUM PHOSPHATE
     Indication: Asthma
  2. Relvar Ellipta 184micrograms/dose / 22micrograms/dose dry powder inhal [Concomitant]
  3. FOLIC ACID [Concomitant]
     Active Substance: FOLIC ACID
  4. MONTELUKAST [Concomitant]
     Active Substance: MONTELUKAST
  5. Salamol 100micrograms/dose inhaler CFC free [Concomitant]
  6. FERROUS SULFATE [Concomitant]
     Active Substance: FERROUS SULFATE
  7. MIRTAZAPINE [Concomitant]
     Active Substance: MIRTAZAPINE
  8. DOXYCYCLINE [Concomitant]
     Active Substance: DOXYCYCLINE
  9. DOCUSATE [Concomitant]
     Active Substance: DOCUSATE
  10. Optrex Eye drops [Concomitant]
  11. OMEPRAZOLE [Concomitant]
     Active Substance: OMEPRAZOLE
  12. INCLISIRAN [Concomitant]
     Active Substance: INCLISIRAN

REACTIONS (2)
  - Haematemesis [Unknown]
  - Faeces discoloured [Unknown]
